FAERS Safety Report 16678411 (Version 1)
Quarter: 2019Q3

REPORT INFORMATION
  Report Type: Spontaneous
  Country: US (occurrence: US)
  Receive Date: 20190807
  Receipt Date: 20190807
  Transmission Date: 20191004
  Serious: No
  Sender: FDA-Public Use
  Company Number: US-PFIZER INC-2019336809

PATIENT
  Age: 55 Year
  Sex: Female

DRUGS (1)
  1. EUCRISA [Suspect]
     Active Substance: CRISABOROLE
     Dosage: UNK, 2X/DAY (APPLY A THIN LAYER TO THE AFFECTED AREA ON LEFT UPPER EYELID TWICE DAILY UNTIL RESOLVE)
     Route: 061

REACTIONS (1)
  - Eyelid irritation [Unknown]
